FAERS Safety Report 8460855-0 (Version None)
Quarter: 2012Q2

REPORT INFORMATION
  Report Type: 
  Country: None (occurrence: None)
  Receive Date: 20120625
  Receipt Date: 20120612
  Transmission Date: 20120825
  Serious: Yes (Hospitalization)
  Sender: FDA-Public Use
  Company Number: DE-AMGEN-DEUCT2012037587

PATIENT
  Age: 55 Year
  Sex: Female
  Weight: 93 kg

DRUGS (2)
  1. ETANERCEPT [Suspect]
     Indication: RHEUMATOID ARTHRITIS
     Dosage: UNK
     Dates: start: 20100326, end: 20110121
  2. RITUXIMAB [Concomitant]
     Dosage: UNK
     Dates: start: 20110128

REACTIONS (1)
  - RHEUMATOID ARTHRITIS [None]
